FAERS Safety Report 24957577 (Version 1)
Quarter: 2025Q1

REPORT INFORMATION
  Report Type: Report from Study
  Country: US (occurrence: US)
  Receive Date: 20250212
  Receipt Date: 20250212
  Transmission Date: 20250409
  Serious: Yes (Other)
  Sender: ABBVIE
  Company Number: US-ABBVIE-6024644

PATIENT
  Age: 67 Year
  Sex: Female

DRUGS (1)
  1. RINVOQ [Suspect]
     Active Substance: UPADACITINIB
     Indication: Dermatitis atopic
     Route: 048
     Dates: start: 20240826

REACTIONS (5)
  - Wrist surgery [Recovered/Resolved with Sequelae]
  - Acne [Not Recovered/Not Resolved]
  - Rash papular [Unknown]
  - Herpes virus infection [Recovering/Resolving]
  - Pain [Recovered/Resolved with Sequelae]

NARRATIVE: CASE EVENT DATE: 20240101
